FAERS Safety Report 16737719 (Version 1)
Quarter: 2019Q3

REPORT INFORMATION
  Report Type: Spontaneous
  Country: JP (occurrence: JP)
  Receive Date: 20190823
  Receipt Date: 20190823
  Transmission Date: 20191005
  Serious: Yes (Hospitalization, Other)
  Sender: FDA-Public Use
  Company Number: JP-EX USA HOLDINGS-EXHL20192365

PATIENT
  Age: 51 Year
  Sex: Female

DRUGS (3)
  1. VONOPRAZAN [Suspect]
     Active Substance: VONOPRAZAN
     Indication: EPIGASTRIC DISCOMFORT
     Dosage: 20 MG
     Route: 065
     Dates: start: 201603
  2. LANSOPRAZOLE. [Suspect]
     Active Substance: LANSOPRAZOLE
     Indication: EPIGASTRIC DISCOMFORT
     Dosage: 15 MG
     Route: 048
     Dates: start: 200808, end: 201212
  3. ESOMEPRAZOLE. [Suspect]
     Active Substance: ESOMEPRAZOLE MAGNESIUM
     Indication: EPIGASTRIC DISCOMFORT
     Dosage: 20 MG
     Route: 065
     Dates: start: 201212, end: 201603

REACTIONS (4)
  - Adenocarcinoma gastric [Recovered/Resolved]
  - Gastric polyps [Recovered/Resolved]
  - Gastric neoplasm [Recovered/Resolved]
  - Gastric dysplasia [Recovered/Resolved]

NARRATIVE: CASE EVENT DATE: 201605
